FAERS Safety Report 7588508-1 (Version None)
Quarter: 2011Q3

REPORT INFORMATION
  Report Type: 
  Country: None (occurrence: None)
  Receive Date: 20110705
  Receipt Date: 20110629
  Transmission Date: 20111222
  Serious: Yes (Other)
  Sender: FDA-Public Use
  Company Number: BE-PFIZER INC-2011144917

PATIENT

DRUGS (2)
  1. VFEND [Suspect]
  2. NEORAL [Concomitant]

REACTIONS (1)
  - NEPHROPATHY TOXIC [None]
